FAERS Safety Report 12014329 (Version 1)
Quarter: 2016Q1

REPORT INFORMATION
  Report Type: Spontaneous
  Country: US (occurrence: None)
  Receive Date: 20160205
  Receipt Date: 20160205
  Transmission Date: 20160526
  Serious: Yes (Hospitalization, Other)
  Sender: FDA-Public Use
  Company Number: US-MDT-ADR-2016-00217

PATIENT
  Age: 50 Year
  Sex: Female

DRUGS (2)
  1. ORAL BACLOFEN 20MG/DAY; FOUR TIMES A DAY [Suspect]
     Active Substance: BACLOFEN
  2. BACLOFEN INTRATHECAL [Suspect]
     Active Substance: BACLOFEN
     Indication: MUSCLE SPASTICITY

REACTIONS (13)
  - Confusional state [None]
  - Muscle spasticity [None]
  - Malaise [None]
  - Crying [None]
  - Pruritus [None]
  - Vomiting [None]
  - Somnolence [None]
  - Weight decreased [None]
  - Emotional distress [None]
  - Pain [None]
  - Drug withdrawal syndrome [None]
  - Heart rate increased [None]
  - Mental disorder [None]
